FAERS Safety Report 5366635-7 (Version None)
Quarter: 2007Q2

REPORT INFORMATION
  Report Type: 
  Country: None (occurrence: None)
  Receive Date: 20070622
  Receipt Date: 20070611
  Transmission Date: 20071010
  Serious: Yes (Hospitalization, Other)
  Sender: FDA-Public Use
  Company Number: SE-NOVOPROD-264538

PATIENT
  Age: 47 Year
  Sex: Male

DRUGS (4)
  1. NOVORAPID [Suspect]
  2. COZAAR COMP FORTE [Concomitant]
     Dosage: 1 TAB, QD
  3. SIMVASTATIN [Concomitant]
     Dosage: 40 MG, QD
  4. TROMBYL [Concomitant]
     Dosage: 75 MG, QD
     Route: 058
     Dates: start: 20000101

REACTIONS (5)
  - BLOOD GLUCOSE INCREASED [None]
  - DRUG INEFFECTIVE [None]
  - FATIGUE [None]
  - NAUSEA [None]
  - VOMITING [None]
